FAERS Safety Report 23189679 (Version 1)
Quarter: 2023Q4

REPORT INFORMATION
  Report Type: Spontaneous
  Country: US (occurrence: US)
  Receive Date: 20231116
  Receipt Date: 20231116
  Transmission Date: 20240110
  Serious: Yes (Hospitalization)
  Sender: FDA-Public Use
  Company Number: US-SA-SAC20231113000494

PATIENT
  Age: 49 Year
  Sex: Female

DRUGS (2)
  1. DUPIXENT [Suspect]
     Active Substance: DUPILUMAB
     Indication: Asthma
     Dosage: 300 MG, QOW
     Route: 058
     Dates: start: 202307
  2. HUMIRA [Concomitant]
     Active Substance: ADALIMUMAB

REACTIONS (6)
  - Hospitalisation [Unknown]
  - Gingival bleeding [Unknown]
  - Gingival pain [Unknown]
  - Toothache [Unknown]
  - Vertigo [Unknown]
  - Asthma [Unknown]

NARRATIVE: CASE EVENT DATE: 20230101
